FAERS Safety Report 14404956 (Version 4)
Quarter: 2018Q1

REPORT INFORMATION
  Report Type: Report from Study
  Country: None (occurrence: US)
  Receive Date: 20180118
  Receipt Date: 20180319
  Transmission Date: 20180509
  Serious: Yes (Hospitalization, Other)
  Sender: FDA-Public Use
  Company Number: US-ABBVIE-18K-163-2209831-00

PATIENT
  Age: 34 Year
  Sex: Female
  Weight: 113.5 kg

DRUGS (2)
  1. HUMIRA [Suspect]
     Active Substance: ADALIMUMAB
     Indication: CROHN^S DISEASE
     Route: 058
     Dates: start: 20171130
  2. WARFARIN [Concomitant]
     Active Substance: WARFARIN
     Indication: DEEP VEIN THROMBOSIS

REACTIONS (9)
  - Blood potassium decreased [Recovered/Resolved]
  - Crohn^s disease [Not Recovered/Not Resolved]
  - Rectal haemorrhage [Recovered/Resolved]
  - Blood phosphorus decreased [Recovered/Resolved]
  - Coagulopathy [Recovered/Resolved]
  - Feeding disorder [Not Recovered/Not Resolved]
  - Rectal haemorrhage [Not Recovered/Not Resolved]
  - Coagulopathy [Not Recovered/Not Resolved]
  - Nausea [Not Recovered/Not Resolved]

NARRATIVE: CASE EVENT DATE: 201712
